FAERS Safety Report 10921200 (Version 1)
Quarter: 2015Q1

REPORT INFORMATION
  Report Type: Spontaneous
  Country: FR (occurrence: FR)
  Receive Date: 20150317
  Receipt Date: 20150317
  Transmission Date: 20150721
  Serious: Yes (Hospitalization)
  Sender: FDA-Public Use
  Company Number: FR-SA-2015SA030441

PATIENT
  Age: 73 Year
  Sex: Male

DRUGS (14)
  1. COUMADIN [Suspect]
     Active Substance: WARFARIN SODIUM
     Indication: ATRIAL FIBRILLATION
     Route: 048
     Dates: start: 20150211, end: 20150217
  2. LEVOTHYROX [Concomitant]
     Active Substance: LEVOTHYROXINE
  3. IMOVANE [Concomitant]
     Active Substance: ZOPICLONE
  4. CASODEX [Concomitant]
     Active Substance: BICALUTAMIDE
  5. PARACETAMOL [Concomitant]
     Active Substance: ACETAMINOPHEN
  6. LOVENOX [Suspect]
     Active Substance: ENOXAPARIN SODIUM
     Route: 058
     Dates: start: 20150217, end: 20150224
  7. SINGULAIR [Concomitant]
     Active Substance: MONTELUKAST SODIUM
  8. ADENURIC [Concomitant]
     Active Substance: FEBUXOSTAT
  9. MIANSERINE [Concomitant]
     Active Substance: MIANSERIN HYDROCHLORIDE
  10. FLECAINE [Concomitant]
     Active Substance: FLECAINIDE
  11. PRAVASTATIN [Concomitant]
     Active Substance: PRAVASTATIN\PRAVASTATIN SODIUM
  12. SERETIDE [Concomitant]
     Active Substance: FLUTICASONE FUROATE\SALMETEROL XINAFOATE
  13. CALCIUM [Concomitant]
     Active Substance: CALCIUM
  14. LERCAN [Concomitant]
     Active Substance: LERCANIDIPINE

REACTIONS (2)
  - Pleural effusion [Recovering/Resolving]
  - Intra-abdominal haematoma [Recovering/Resolving]

NARRATIVE: CASE EVENT DATE: 20150224
